FAERS Safety Report 8960695 (Version 1)
Quarter: 2012Q4

REPORT INFORMATION
  Report Type: 
  Country: AU (occurrence: AU)
  Receive Date: 20121213
  Receipt Date: 20121213
  Transmission Date: 20130627
  Serious: Yes (Hospitalization)
  Sender: FDA-Public Use
  Company Number: AU-009507513-1212AUS004311

PATIENT
  Age: 83 Year
  Sex: Male

DRUGS (5)
  1. MIRTAZAPINE [Suspect]
     Indication: ANXIETY DISORDER
     Dosage: 30 mg, qd
     Dates: start: 20120622, end: 20120624
  2. NITROGLYCERIN [Concomitant]
  3. RIVASTIGMINE [Concomitant]
  4. SIMVASTATIN [Concomitant]
  5. VERAPAMIL HYDROCHLORIDE [Concomitant]

REACTIONS (4)
  - Anxiety [Unknown]
  - Confusional state [Unknown]
  - Panic attack [Unknown]
  - Somnolence [Unknown]
